FAERS Safety Report 14473061 (Version 1)
Quarter: 2018Q1

REPORT INFORMATION
  Report Type: Spontaneous
  Country: EG (occurrence: EG)
  Receive Date: 20180201
  Receipt Date: 20180201
  Transmission Date: 20180509
  Serious: Yes (Life-Threatening, Other)
  Sender: FDA-Public Use
  Company Number: EG-ACCORD-063047

PATIENT
  Age: 59 Year
  Sex: Male

DRUGS (3)
  1. FLUOROURACIL. [Suspect]
     Active Substance: FLUOROURACIL
     Indication: ADENOID CYSTIC CARCINOMA
     Dosage: D1-4
  2. CISPLATIN. [Suspect]
     Active Substance: CISPLATIN
     Indication: ADENOID CYSTIC CARCINOMA
     Dosage: D 1
  3. DOCETAXEL. [Suspect]
     Active Substance: DOCETAXEL
     Indication: ADENOID CYSTIC CARCINOMA
     Dosage: D 1

REACTIONS (4)
  - Mucosal inflammation [Unknown]
  - Neutropenia [Unknown]
  - Diarrhoea [Unknown]
  - Drug ineffective [Unknown]
